FAERS Safety Report 8441955-8 (Version None)
Quarter: 2012Q2

REPORT INFORMATION
  Report Type: 
  Country: None (occurrence: None)
  Receive Date: 20120615
  Receipt Date: 20111109
  Transmission Date: 20120825
  Serious: No
  Sender: FDA-Public Use
  Company Number: US-NOVEN-11US003598

PATIENT
  Sex: Male

DRUGS (1)
  1. DAYTRANA [Suspect]
     Indication: ABNORMAL BEHAVIOUR
     Dosage: 60 MG, THREE 20 MG PATCHES AT THE SAME TIME
     Route: 062

REACTIONS (4)
  - REBOUND EFFECT [None]
  - WRONG TECHNIQUE IN DRUG USAGE PROCESS [None]
  - OFF LABEL USE [None]
  - DRUG PRESCRIBING ERROR [None]
